FAERS Safety Report 4551718-1 (Version None)
Quarter: 2005Q1

REPORT INFORMATION
  Report Type: 
  Country: None (occurrence: None)
  Receive Date: 20050112
  Receipt Date: 20050103
  Transmission Date: 20050727
  Serious: Yes (Other)
  Sender: FDA-Public Use
  Company Number: 200416235BCC

PATIENT
  Age: 47 Year
  Sex: Female
  Weight: 61.2356 kg

DRUGS (6)
  1. ALEVE [Suspect]
     Indication: ARTHRITIS
     Dosage: ORAL
     Route: 048
     Dates: start: 20000101, end: 20031201
  2. ALEVE [Suspect]
     Indication: INFLAMMATION
     Dosage: ORAL
     Route: 048
     Dates: start: 20000101, end: 20031201
  3. ALEVE [Suspect]
     Indication: OSTEOARTHRITIS
     Dosage: ORAL
     Route: 048
     Dates: start: 20000101, end: 20031201
  4. SYNTHROID [Concomitant]
  5. NORTREL 7/7/7 [Concomitant]
  6. IBUPROFEN [Concomitant]

REACTIONS (3)
  - BLOOD CHOLESTEROL INCREASED [None]
  - CARDIAC OPERATION [None]
  - CARDIAC VALVE DISEASE [None]
